FAERS Safety Report 19819650 (Version 1)
Quarter: 2021Q3

REPORT INFORMATION
  Report Type: Spontaneous
  Country: CN (occurrence: CN)
  Receive Date: 20210913
  Receipt Date: 20210913
  Transmission Date: 20211014
  Serious: Yes (Hospitalization)
  Sender: FDA-Public Use
  Company Number: CN-ROCHE-2908705

PATIENT
  Sex: Female
  Weight: 54 kg

DRUGS (11)
  1. HERCEPTIN [Suspect]
     Active Substance: TRASTUZUMAB
     Indication: BREAST CANCER
     Dosage: ONCE PER MORNING
     Route: 041
     Dates: start: 20210824, end: 20210824
  2. HERCEPTIN [Suspect]
     Active Substance: TRASTUZUMAB
     Indication: CANCER SURGERY
  3. SODIUM CHLORIDE. [Concomitant]
     Active Substance: SODIUM CHLORIDE
     Dosage: ONCE PER MORNING
     Route: 041
     Dates: start: 20210824, end: 20210824
  4. DOCETAXEL. [Suspect]
     Active Substance: DOCETAXEL
     Indication: BREAST CANCER
     Dosage: ONCE PER MORNING
     Route: 041
     Dates: start: 20210824, end: 20210824
  5. CYCLOPHOSPHAMIDE. [Concomitant]
     Active Substance: CYCLOPHOSPHAMIDE
  6. SODIUM CHLORIDE. [Concomitant]
     Active Substance: SODIUM CHLORIDE
     Dosage: ONCE PER MORNING
     Route: 041
     Dates: start: 20210824, end: 20210824
  7. EPIRUBICIN [Concomitant]
     Active Substance: EPIRUBICIN
  8. PERJETA [Suspect]
     Active Substance: PERTUZUMAB
     Indication: CANCER SURGERY
  9. DOCETAXEL. [Suspect]
     Active Substance: DOCETAXEL
     Indication: CANCER SURGERY
  10. PERJETA [Suspect]
     Active Substance: PERTUZUMAB
     Indication: BREAST CANCER
     Dosage: ONCE PER MORNING
     Route: 041
     Dates: start: 20210824, end: 20210824
  11. SODIUM CHLORIDE. [Concomitant]
     Active Substance: SODIUM CHLORIDE
     Dosage: ONCE PER MORNING
     Route: 041
     Dates: start: 20210824, end: 20210824

REACTIONS (1)
  - Myelosuppression [Unknown]
